FAERS Safety Report 10404362 (Version 2)
Quarter: 2014Q3

REPORT INFORMATION
  Report Type: Spontaneous
  Country: DE (occurrence: DE)
  Receive Date: 20140823
  Receipt Date: 20140829
  Transmission Date: 20150326
  Serious: Yes (Hospitalization, Other)
  Sender: FDA-Public Use
  Company Number: PHHY2014DE102064

PATIENT
  Sex: Male

DRUGS (7)
  1. DIOVAN [Suspect]
     Active Substance: VALSARTAN
     Dosage: UNK UKN, UNK
     Route: 064
  2. PROTAPHANE [Concomitant]
     Active Substance: INSULIN HUMAN
     Dosage: UNK UKN, UNK
  3. EUCREAS [Concomitant]
     Active Substance: METFORMIN HYDROCHLORIDE\VILDAGLIPTIN
     Dosage: UNK UKN, UNK
  4. CELESTAN [Concomitant]
     Active Substance: BETAMETHASONE
     Dosage: UNK UKN, UNK
  5. IBUPROFEN. [Concomitant]
     Active Substance: IBUPROFEN
     Dosage: UNK UKN, UNK
  6. PARACETAMOL [Concomitant]
     Active Substance: ACETAMINOPHEN
     Dosage: UNK UKN, UNK
  7. FOLIO [Concomitant]
     Active Substance: FOLIC ACID
     Dosage: UNK UKN, UNK

REACTIONS (7)
  - Polycythaemia [Recovered/Resolved]
  - Hypoglycaemia [Recovered/Resolved]
  - Poor sucking reflex [Recovered/Resolved]
  - Thrombocytopenia neonatal [Recovered/Resolved]
  - Foetal exposure during delivery [Unknown]
  - Premature baby [Unknown]
  - Hyperbilirubinaemia [Recovered/Resolved]
